FAERS Safety Report 23947016 (Version 1)
Quarter: 2024Q2

REPORT INFORMATION
  Report Type: Spontaneous
  Country: US (occurrence: US)
  Receive Date: 20240606
  Receipt Date: 20240606
  Transmission Date: 20240716
  Serious: No
  Sender: FDA-Public Use
  Company Number: US-BIOVITRUM-2024-US-008094

PATIENT
  Age: 63 Year
  Sex: Male

DRUGS (1)
  1. VONJO [Suspect]
     Active Substance: PACRITINIB
     Indication: Plasma cell myeloma
     Dosage: TWICE DAILY
     Route: 048
     Dates: start: 20230306

REACTIONS (5)
  - Nausea [Recovered/Resolved]
  - Fatigue [Not Recovered/Not Resolved]
  - Full blood count decreased [Unknown]
  - Intentional product misuse [Not Recovered/Not Resolved]
  - Nail bed bleeding [Unknown]
